FAERS Safety Report 17003890 (Version 2)
Quarter: 2020Q1

REPORT INFORMATION
  Report Type: Spontaneous
  Country: US (occurrence: US)
  Receive Date: 20191107
  Receipt Date: 20200108
  Transmission Date: 20200409
  Serious: Yes (Other)
  Sender: FDA-Public Use
  Company Number: US-PFIZER INC-2019477138

PATIENT
  Age: 50 Year
  Sex: Female
  Weight: 114 kg

DRUGS (1)
  1. CELEBREX [Suspect]
     Active Substance: CELECOXIB
     Indication: ARTHRITIS
     Dosage: 200 MG, 2X/DAY [ONE CAPSULE IN THE MORNING AND ONE AT NIGHT]
     Route: 048
     Dates: start: 201102

REACTIONS (3)
  - Drug dependence [Not Recovered/Not Resolved]
  - Herpes zoster [Not Recovered/Not Resolved]
  - Pain [Not Recovered/Not Resolved]

NARRATIVE: CASE EVENT DATE: 201102
